FAERS Safety Report 12385571 (Version 2)
Quarter: 2016Q2

REPORT INFORMATION
  Report Type: Spontaneous
  Country: US (occurrence: US)
  Receive Date: 20160519
  Receipt Date: 20160610
  Transmission Date: 20160815
  Serious: Yes (Other)
  Sender: FDA-Public Use
  Company Number: US-BAYER-2016-096642

PATIENT
  Age: 22 Year
  Sex: Female
  Weight: 79.37 kg

DRUGS (2)
  1. CYTOTEC [Suspect]
     Active Substance: MISOPROSTOL
     Indication: UTERINE CERVIX DILATION PROCEDURE
     Dosage: 200 ?G, UNK
  2. MIRENA [Suspect]
     Active Substance: LEVONORGESTREL
     Indication: CONTRACEPTION
     Dosage: 20 MCG/24HR, CONT
     Route: 015
     Dates: start: 20160509

REACTIONS (2)
  - Device difficult to use [None]
  - Uterine perforation [None]

NARRATIVE: CASE EVENT DATE: 20160509
